FAERS Safety Report 11821765 (Version 1)
Quarter: 2015Q4

REPORT INFORMATION
  Report Type: Spontaneous
  Country: JP (occurrence: JP)
  Receive Date: 20151210
  Receipt Date: 20151210
  Transmission Date: 20160305
  Serious: Yes (Other)
  Sender: FDA-Public Use
  Company Number: JP-JNJFOC-20151205566

PATIENT
  Age: 7 Decade
  Sex: Male

DRUGS (5)
  1. PREDNISOLONE. [Concomitant]
     Active Substance: PREDNISOLONE
     Indication: PACHYMENINGITIS
     Route: 065
  2. GONAX [Concomitant]
     Active Substance: DEGARELIX
     Indication: PRODUCT USED FOR UNKNOWN INDICATION
     Route: 058
  3. CALONAL [Concomitant]
     Active Substance: ACETAMINOPHEN
     Indication: BACK PAIN
     Route: 065
     Dates: start: 20150324, end: 20150331
  4. ZYTIGA [Suspect]
     Active Substance: ABIRATERONE ACETATE
     Indication: PROSTATE CANCER
     Route: 048
     Dates: start: 20150224, end: 20150324
  5. URIEF [Concomitant]
     Active Substance: SILODOSIN
     Indication: DYSURIA
     Route: 048

REACTIONS (5)
  - Metastases to bone [Recovering/Resolving]
  - Haemoglobin decreased [Recovering/Resolving]
  - White blood cell count decreased [Recovered/Resolved]
  - Hydronephrosis [Recovering/Resolving]
  - Neutrophil count decreased [Recovered/Resolved]

NARRATIVE: CASE EVENT DATE: 20150324
